FAERS Safety Report 11104915 (Version 1)
Quarter: 2015Q2

REPORT INFORMATION
  Report Type: Spontaneous
  Country: US (occurrence: US)
  Receive Date: 20150511
  Receipt Date: 20150511
  Transmission Date: 20150821
  Serious: No
  Sender: FDA-Public Use
  Company Number: US-PFIZER INC-2015148378

PATIENT
  Age: 56 Year
  Sex: Female

DRUGS (4)
  1. MYRBETRIQ [Interacting]
     Active Substance: MIRABEGRON
     Dosage: 25 MG, 1X/DAY
     Dates: start: 20150228
  2. TEMAZEPAM. [Interacting]
     Active Substance: TEMAZEPAM
     Indication: ANXIETY DISORDER
     Dosage: UNK
  3. BUSPIRONE [Interacting]
     Active Substance: BUSPIRONE HYDROCHLORIDE
     Indication: ANXIETY DISORDER
     Dosage: UNK
  4. PRISTIQ EXTENDED RELEASE [Suspect]
     Active Substance: DESVENLAFAXINE SUCCINATE
     Indication: ANXIETY DISORDER
     Dosage: UNK

REACTIONS (3)
  - Drug interaction [Unknown]
  - Feeling abnormal [Unknown]
  - Anxiety [Unknown]
